FAERS Safety Report 24285875 (Version 1)
Quarter: 2024Q3

REPORT INFORMATION
  Report Type: Report from Study
  Country: EG (occurrence: EG)
  Receive Date: 20240905
  Receipt Date: 20240905
  Transmission Date: 20241016
  Serious: Yes (Hospitalization)
  Sender: ABBVIE
  Company Number: EG-ABBVIE-5904612

PATIENT
  Age: 38 Year
  Sex: Male

DRUGS (7)
  1. HUMIRA [Suspect]
     Active Substance: ADALIMUMAB
     Indication: Colitis ulcerative
     Dosage: 1 INJECTION AFTER 14 DAYS
     Route: 058
     Dates: start: 2024, end: 2024
  2. HUMIRA [Suspect]
     Active Substance: ADALIMUMAB
     Dosage: 2 INJECTIONS AT DAY 0 THEN 2 INJECTIONS ON THE NEXT DAY
     Route: 058
     Dates: start: 202406, end: 202406
  3. HUMIRA [Suspect]
     Active Substance: ADALIMUMAB
     Dosage: 2 INJECTIONS AFTER 14 DAYS
     Route: 058
     Dates: start: 202406, end: 202406
  4. Solupred [Concomitant]
     Indication: Product used for unknown indication
  5. PENTASA [Concomitant]
     Active Substance: MESALAMINE
     Indication: Colitis ulcerative
  6. Daflon [Concomitant]
     Indication: Product used for unknown indication
  7. GASTROBIOTIC [Concomitant]
     Indication: Product used for unknown indication

REACTIONS (5)
  - Haemorrhage [Recovered/Resolved]
  - Drug ineffective [Recovered/Resolved]
  - Fatigue [Recovered/Resolved]
  - Drug level decreased [Unknown]
  - Wrong technique in product usage process [Recovered/Resolved]

NARRATIVE: CASE EVENT DATE: 20240101
